FAERS Safety Report 6377871-5 (Version None)
Quarter: 2009Q3

REPORT INFORMATION
  Report Type: 
  Country: None (occurrence: None)
  Receive Date: 20090925
  Receipt Date: 20090914
  Transmission Date: 20100115
  Serious: Yes (Other)
  Sender: FDA-Public Use
  Company Number: PHEH2009US10869

PATIENT
  Sex: Female

DRUGS (6)
  1. DIOVAN HCT [Suspect]
     Indication: BLOOD PRESSURE
     Dosage: 160/25MG, QD
  2. COREG [Suspect]
     Dosage: 25 MG, UNK
     Dates: end: 20090918
  3. LISINOPRIL [Suspect]
     Dosage: 40 MG, UNK
  4. COUMADIN [Suspect]
     Dosage: 0.1 MG, UNK
  5. SIMVASTATIN [Concomitant]
     Dosage: 40 MG, UNK
  6. ASPIRIN [Concomitant]
     Dosage: 81 MG, UNK

REACTIONS (12)
  - DIZZINESS [None]
  - GAIT DISTURBANCE [None]
  - HEADACHE [None]
  - HEART VALVE REPLACEMENT [None]
  - HIP ARTHROPLASTY [None]
  - KNEE ARTHROPLASTY [None]
  - LIMB DISCOMFORT [None]
  - LIMB OPERATION [None]
  - MUSCULAR WEAKNESS [None]
  - PRURITUS [None]
  - RASH ERYTHEMATOUS [None]
  - STRESS [None]
